FAERS Safety Report 20102693 (Version 2)
Quarter: 2021Q4

REPORT INFORMATION
  Report Type: Spontaneous
  Country: JP (occurrence: JP)
  Receive Date: 20211123
  Receipt Date: 20211215
  Transmission Date: 20220303
  Serious: Yes (Other)
  Sender: FDA-Public Use
  Company Number: JP-PFIZER INC-202101550871

PATIENT
  Age: 25 Year
  Sex: Female

DRUGS (8)
  1. SOLU-CORTEF [Suspect]
     Active Substance: HYDROCORTISONE SODIUM SUCCINATE
     Dosage: 250 MG
     Route: 041
     Dates: start: 20211108
  2. SODIUM CHLORIDE [Suspect]
     Active Substance: SODIUM CHLORIDE
     Dosage: 100 ML
     Route: 041
     Dates: start: 20211108
  3. HISTAGLOBIN [Concomitant]
     Indication: Atopy
     Dosage: UNK
     Route: 058
     Dates: start: 20200930
  4. ORYCTOLAGUS CUNICULUS SKIN [Concomitant]
     Active Substance: ORYCTOLAGUS CUNICULUS SKIN
     Indication: Atopy
     Dosage: UNK
     Route: 058
     Dates: start: 20200930
  5. BILASTINE [Concomitant]
     Active Substance: BILASTINE
     Indication: Atopy
     Dosage: UNK
     Route: 048
     Dates: start: 20210618
  6. PROTOPIC [Concomitant]
     Active Substance: TACROLIMUS
     Indication: Atopy
     Dosage: UNK
     Route: 061
     Dates: start: 20210915
  7. BETAMETHASONE BUTYRATE PROPIONATE [Concomitant]
     Active Substance: BETAMETHASONE BUTYRATE PROPIONATE
     Indication: Atopy
     Dosage: UNK
     Route: 061
     Dates: start: 20191218
  8. CHONDROITIN SULFATE (BOVINE) [Concomitant]
     Active Substance: CHONDROITIN SULFATE (BOVINE)
     Indication: Atopy
     Dosage: UNK
     Route: 061
     Dates: start: 20191218

REACTIONS (4)
  - Chills [Recovering/Resolving]
  - Dyspnoea [Recovering/Resolving]
  - Headache [Recovering/Resolving]
  - Pyrexia [Recovering/Resolving]

NARRATIVE: CASE EVENT DATE: 20211108
